FAERS Safety Report 7283041-9 (Version None)
Quarter: 2011Q1

REPORT INFORMATION
  Report Type: 
  Country: None (occurrence: None)
  Receive Date: 20110209
  Receipt Date: 20110202
  Transmission Date: 20110831
  Serious: Yes (Death, Hospitalization)
  Sender: FDA-Public Use
  Company Number: FR-SANOFI-AVENTIS-2010SA072619

PATIENT
  Age: 81 Year
  Sex: Male

DRUGS (14)
  1. TENORMIN [Concomitant]
     Route: 048
  2. LOVENOX [Concomitant]
     Route: 058
  3. SINTROM [Concomitant]
     Route: 048
  4. DAFALGAN [Concomitant]
     Route: 048
     Dates: start: 20101001
  5. MULTAQ [Suspect]
     Indication: ATRIAL FIBRILLATION
     Route: 048
     Dates: start: 20101112, end: 20101119
  6. MULTAQ [Suspect]
     Route: 048
     Dates: start: 20101124, end: 20101127
  7. CLARITIN [Concomitant]
     Route: 065
  8. AERIUS [Concomitant]
     Route: 048
  9. TAHOR [Concomitant]
     Route: 048
     Dates: start: 20101001
  10. CORDARONE [Suspect]
     Indication: ATRIAL FIBRILLATION
     Route: 048
     Dates: start: 20081218, end: 20101111
  11. STILNOX [Concomitant]
     Route: 048
  12. VENTOLIN [Concomitant]
     Indication: PROPHYLAXIS
     Route: 055
     Dates: start: 20101001
  13. ATROVENT [Concomitant]
     Indication: PROPHYLAXIS
     Route: 055
     Dates: start: 20101001
  14. OGAST [Concomitant]
     Route: 048
     Dates: start: 20101001

REACTIONS (4)
  - CONDITION AGGRAVATED [None]
  - DYSPNOEA [None]
  - ACUTE RESPIRATORY FAILURE [None]
  - INTERSTITIAL LUNG DISEASE [None]
